FAERS Safety Report 10636410 (Version 1)
Quarter: 2014Q4

REPORT INFORMATION
  Report Type: Spontaneous
  Country: US (occurrence: US)
  Receive Date: 20141207
  Receipt Date: 20141207
  Transmission Date: 20150529
  Serious: No
  Sender: FDA-Public Use
  Company Number: US-GLAXOSMITHKLINE-A1065669A

PATIENT

DRUGS (1)
  1. HYCAMTIN [Suspect]
     Active Substance: TOPOTECAN HYDROCHLORIDE
     Indication: OVARIAN CANCER
     Dosage: 3 MG TOTAL (1 MG CAPSULES) ONCE PER WEEK ON FRIDAY
     Route: 065

REACTIONS (4)
  - Vomiting [Unknown]
  - Chills [Unknown]
  - Dysuria [Unknown]
  - Nausea [Unknown]
